FAERS Safety Report 7903294-0 (Version None)
Quarter: 2011Q4

REPORT INFORMATION
  Report Type: 
  Country: None (occurrence: None)
  Receive Date: 20111109
  Receipt Date: 20111101
  Transmission Date: 20120403
  Serious: Yes (Other)
  Sender: FDA-Public Use
  Company Number: US-JNJFOC-20111101702

PATIENT
  Age: 44 Year
  Sex: Female
  Weight: 58.06 kg

DRUGS (2)
  1. ELMIRON [Suspect]
     Indication: CYSTITIS
     Route: 065
     Dates: start: 20111001
  2. ELMIRON [Suspect]
     Dosage: PATIENT STOPPED FOR 3 MONTHS DUE TO SHORTAGE
     Route: 065

REACTIONS (2)
  - BREAST CANCER [None]
  - DRUG DOSE OMISSION [None]
